FAERS Safety Report 13528584 (Version 1)
Quarter: 2017Q2

REPORT INFORMATION
  Report Type: Spontaneous
  Country: US (occurrence: US)
  Receive Date: 20170509
  Receipt Date: 20170509
  Transmission Date: 20170830
  Serious: Yes (Hospitalization, Other)
  Sender: FDA-Public Use
  Company Number: US-MYLANLABS-2017M1027950

PATIENT

DRUGS (5)
  1. CYTARABINE. [Suspect]
     Active Substance: CYTARABINE
     Dosage: 3 G/M2, TWICE DAILY ON ALTERNATIVE DAYS FOR SIX DOSES
     Route: 065
  2. IDARUBICIN [Concomitant]
     Active Substance: IDARUBICIN
     Indication: ACUTE MYELOID LEUKAEMIA
     Dosage: (7+3 REGIMEN) AS INDUCTION CHEMOTHERAPY
     Route: 065
  3. IDARUBICIN [Concomitant]
     Active Substance: IDARUBICIN
     Dosage: (5+2 REGIMEN) REINDUCTION
     Route: 065
  4. CYTARABINE. [Suspect]
     Active Substance: CYTARABINE
     Dosage: (5+2 REGIMEN) REINDUCTION
     Route: 065
  5. CYTARABINE. [Suspect]
     Active Substance: CYTARABINE
     Indication: ACUTE MYELOID LEUKAEMIA
     Dosage: (7+3 REGIMEN) AS INDUCTION CHEMOTHERAPY
     Route: 065

REACTIONS (2)
  - Febrile neutropenia [Recovering/Resolving]
  - Intussusception [Recovering/Resolving]
